FAERS Safety Report 7418139-5 (Version None)
Quarter: 2011Q2

REPORT INFORMATION
  Report Type: 
  Country: None (occurrence: None)
  Receive Date: 20110415
  Receipt Date: 20110411
  Transmission Date: 20111010
  Serious: Yes (Other)
  Sender: FDA-Public Use
  Company Number: US-SANOFI-AVENTIS-2011SA022689

PATIENT
  Age: 68 Year
  Sex: Male

DRUGS (3)
  1. LANTUS [Suspect]
     Indication: TYPE 2 DIABETES MELLITUS
     Dosage: DOSE:30 UNIT(S)
     Route: 058
  2. LANTUS [Suspect]
     Dosage: DOSE:20 UNIT(S)
     Route: 058
  3. NOVOLOG [Concomitant]

REACTIONS (1)
  - DEAFNESS UNILATERAL [None]
